FAERS Safety Report 5647966-X (Version None)
Quarter: 2008Q1

REPORT INFORMATION
  Report Type: 
  Country: None (occurrence: None)
  Receive Date: 20080229
  Receipt Date: 20080220
  Transmission Date: 20080703
  Serious: Yes (Hospitalization)
  Sender: FDA-Public Use
  Company Number: 2008-01476

PATIENT
  Age: 49 Year
  Sex: Female

DRUGS (1)
  1. PENTAZOCINE + NALOXONE (NALOXONE HYDROCHLORIDE 0.5 MG, PENTAZOCINE HYD [Suspect]
     Indication: OVERDOSE
     Dosage: 2 MG OF NALOXONE TOTAL, INTRAVENOUS
     Route: 042
     Dates: start: 20070101

REACTIONS (1)
  - PULMONARY OEDEMA [None]
